FAERS Safety Report 18048840 (Version 1)
Quarter: 2020Q3

REPORT INFORMATION
  Report Type: Spontaneous
  Country: CA (occurrence: CA)
  Receive Date: 20200721
  Receipt Date: 20200721
  Transmission Date: 20201103
  Serious: Yes (Other)
  Sender: FDA-Public Use
  Company Number: CA-ACCORD-191249

PATIENT
  Sex: Female

DRUGS (5)
  1. METHOTREXATE. [Suspect]
     Active Substance: METHOTREXATE
     Indication: RHEUMATOID ARTHRITIS
  2. XELJANZ [Concomitant]
     Active Substance: TOFACITINIB CITRATE
     Indication: PRODUCT USED FOR UNKNOWN INDICATION
  3. ACTEMRA [Suspect]
     Active Substance: TOCILIZUMAB
     Indication: RHEUMATOID ARTHRITIS
  4. ARAVA [Suspect]
     Active Substance: LEFLUNOMIDE
     Indication: PRODUCT USED FOR UNKNOWN INDICATION
  5. ENBREL [Suspect]
     Active Substance: ETANERCEPT
     Indication: PRODUCT USED FOR UNKNOWN INDICATION

REACTIONS (11)
  - C-reactive protein increased [Unknown]
  - Drug intolerance [Unknown]
  - Stomatitis [Unknown]
  - Drug ineffective [Unknown]
  - Anti-cyclic citrullinated peptide antibody positive [Unknown]
  - Swelling [Unknown]
  - Memory impairment [Unknown]
  - Fluid retention [Unknown]
  - Joint swelling [Unknown]
  - Pain [Unknown]
  - Rheumatoid arthritis [Unknown]
